FAERS Safety Report 12534572 (Version 1)
Quarter: 2016Q3

REPORT INFORMATION
  Report Type: Report from Study
  Country: US (occurrence: US)
  Receive Date: 20160706
  Receipt Date: 20160706
  Transmission Date: 20161109
  Serious: Yes (Hospitalization, Other)
  Sender: FDA-Public Use
  Company Number: US-GILEAD-2016-0221704

PATIENT
  Age: 60 Year
  Sex: Female

DRUGS (1)
  1. RANOLAZINE [Suspect]
     Active Substance: RANOLAZINE
     Indication: MICROVASCULAR CORONARY ARTERY DISEASE
     Dosage: 500 MG, UNK
     Route: 048
     Dates: start: 20160629, end: 20160630

REACTIONS (2)
  - Off label use [Recovered/Resolved]
  - Myocardial infarction [Unknown]

NARRATIVE: CASE EVENT DATE: 20160629
